FAERS Safety Report 18038736 (Version 3)
Quarter: 2020Q3

REPORT INFORMATION
  Report Type: Report from Study
  Country: US (occurrence: US)
  Receive Date: 20200717
  Receipt Date: 20200807
  Transmission Date: 20201103
  Serious: Yes (Life-Threatening, Other)
  Sender: FDA-Public Use
  Company Number: US-PFIZER INC-2020265378

PATIENT
  Age: 27 Year
  Sex: Male
  Weight: 74.2 kg

DRUGS (4)
  1. LAMICTAL [Concomitant]
     Active Substance: LAMOTRIGINE
     Dosage: 200 MG, BID
  2. KEPPRA [Concomitant]
     Active Substance: LEVETIRACETAM
     Dosage: 2000 MG, BID
  3. ENCORAFENIB [Suspect]
     Active Substance: ENCORAFENIB
     Indication: ASTROCYTOMA
     Dosage: 450 MG, DAILY
     Dates: start: 20200124, end: 20200710
  4. BINIMETINIB [Suspect]
     Active Substance: BINIMETINIB
     Indication: ASTROCYTOMA
     Dosage: 45 MG, BID
     Dates: start: 20200124, end: 20200710

REACTIONS (4)
  - Blood creatine phosphokinase increased [Recovering/Resolving]
  - Myalgia [Unknown]
  - Pyrexia [Unknown]
  - Aspartate aminotransferase increased [Unknown]

NARRATIVE: CASE EVENT DATE: 20200630
